FAERS Safety Report 8473965-9 (Version None)
Quarter: 2012Q2

REPORT INFORMATION
  Report Type: 
  Country: None (occurrence: None)
  Receive Date: 20120628
  Receipt Date: 20120314
  Transmission Date: 20120825
  Serious: Yes (Other)
  Sender: FDA-Public Use
  Company Number: US-MYLANLABS-2012S1004530

PATIENT
  Age: 47 Year
  Sex: Male
  Weight: 60.8 kg

DRUGS (8)
  1. LISINOPRIL [Concomitant]
  2. VISTARIL [Concomitant]
  3. LANTUS [Concomitant]
  4. FLEET MINERAL OIL [Concomitant]
  5. REGLAN [Concomitant]
  6. CLOZAPINE [Suspect]
     Indication: SCHIZOPHRENIA
     Route: 048
     Dates: start: 20120126, end: 20120210
  7. ASPIRIN [Concomitant]
  8. NOVOLOG [Concomitant]

REACTIONS (2)
  - LEUKOPENIA [None]
  - PYREXIA [None]
